FAERS Safety Report 25329053 (Version 1)
Quarter: 2025Q2

REPORT INFORMATION
  Report Type: Report from Study
  Country: US (occurrence: US)
  Receive Date: 20250519
  Receipt Date: 20250519
  Transmission Date: 20250717
  Serious: Yes (Hospitalization)
  Sender: ARDELYX
  Company Number: US-ARDELYX-2024ARDX008894

PATIENT
  Sex: Female

DRUGS (2)
  1. IBSRELA [Suspect]
     Active Substance: TENAPANOR HYDROCHLORIDE
     Indication: Gastrointestinal motility disorder
     Route: 065
     Dates: start: 202403, end: 202411
  2. IBSRELA [Suspect]
     Active Substance: TENAPANOR HYDROCHLORIDE
     Route: 065
     Dates: start: 20241212

REACTIONS (8)
  - Post procedural haematoma [Unknown]
  - Renal transplant [Unknown]
  - Small intestinal resection [Unknown]
  - Gastrectomy [Unknown]
  - Appendicectomy [Unknown]
  - Drug effective for unapproved indication [Unknown]
  - Off label use [Unknown]
  - Product availability issue [Unknown]

NARRATIVE: CASE EVENT DATE: 20240101
